FAERS Safety Report 22018171 (Version 1)
Quarter: 2023Q1

REPORT INFORMATION
  Report Type: Report from Study
  Country: US (occurrence: US)
  Receive Date: 20230221
  Receipt Date: 20230221
  Transmission Date: 20230417
  Serious: No
  Sender: FDA-Public Use
  Company Number: US-LUNDBECK-DKLU3058481

PATIENT
  Age: 34 Year
  Sex: Female

DRUGS (1)
  1. VYEPTI [Suspect]
     Active Substance: EPTINEZUMAB-JJMR
     Indication: Migraine
     Route: 041
     Dates: start: 20230201

REACTIONS (3)
  - Throat irritation [Unknown]
  - Upper-airway cough syndrome [Unknown]
  - Sinusitis [Unknown]

NARRATIVE: CASE EVENT DATE: 20230201
